FAERS Safety Report 9753772 (Version 3)
Quarter: 2014Q3

REPORT INFORMATION
  Report Type: Spontaneous
  Country: US (occurrence: US)
  Receive Date: 20131213
  Receipt Date: 20140722
  Transmission Date: 20150326
  Serious: Yes (Hospitalization, Other)
  Sender: FDA-Public Use
  Company Number: US-009507513-1312USA006197

PATIENT
  Sex: Female

DRUGS (2)
  1. NUVARING [Suspect]
     Active Substance: ETHINYL ESTRADIOL\ETONOGESTREL
     Indication: CONTRACEPTION
     Dosage: INSERT FOR 3 WEEKS, REMOVE FOR 1 WEEK
     Route: 067
     Dates: start: 2012, end: 201203
  2. NUVARING [Suspect]
     Active Substance: ETHINYL ESTRADIOL\ETONOGESTREL
     Dosage: INSERT FOR 3 WEEKS, REMOVE FOR 1 WEEK
     Route: 067
     Dates: start: 200704

REACTIONS (12)
  - Hypertension [Recovered/Resolved]
  - Coagulopathy [Unknown]
  - Pulmonary embolism [Unknown]
  - Knee operation [Unknown]
  - Depression [Unknown]
  - Arteriosclerosis coronary artery [Unknown]
  - Goitre [Unknown]
  - Hepatic steatosis [Unknown]
  - Deep vein thrombosis [Unknown]
  - Thrombophlebitis superficial [Unknown]
  - Anxiety [Unknown]
  - Lung infection [Unknown]

NARRATIVE: CASE EVENT DATE: 201112
